FAERS Safety Report 7533548-1 (Version None)
Quarter: 2011Q2

REPORT INFORMATION
  Report Type: 
  Country: None (occurrence: None)
  Receive Date: 20110608
  Receipt Date: 20060203
  Transmission Date: 20111010
  Serious: Yes (Death, Other)
  Sender: FDA-Public Use
  Company Number: PHFR2005GB03594

PATIENT
  Sex: Male

DRUGS (6)
  1. CLOZAPINE [Suspect]
     Indication: SCHIZOPHRENIA
     Dosage: 500 MG, DAILY
     Route: 048
     Dates: start: 20040429
  2. RISPERIDONE [Concomitant]
     Indication: SCHIZOPHRENIA
     Dosage: 2 MG,/DAY
     Route: 048
  3. FOLIC ACID [Concomitant]
     Indication: ANAEMIA
     Dosage: 5 MG,/DAY
     Route: 048
  4. HYOSCINE HYDROBROMIDE [Concomitant]
     Indication: SALIVARY HYPERSECRETION
     Dosage: 600 UG, DAILY
     Route: 048
  5. HEROIN [Suspect]
     Dosage: UNKNOWN
     Route: 065
  6. VALPROATE SODIUM [Concomitant]
     Indication: CONVULSION
     Dosage: 500 MG, DAILY
     Route: 048

REACTIONS (2)
  - HEPATITIS C [None]
  - TOXICITY TO VARIOUS AGENTS [None]
